FAERS Safety Report 12519096 (Version 1)
Quarter: 2016Q2

REPORT INFORMATION
  Report Type: Report from Study
  Country: BR (occurrence: BR)
  Receive Date: 20160630
  Receipt Date: 20160630
  Transmission Date: 20160815
  Serious: Yes (Hospitalization)
  Sender: FDA-Public Use
  Company Number: PHHY2016BR062731

PATIENT
  Sex: Female
  Weight: 53 kg

DRUGS (2)
  1. SANDOSTATIN LAR DEPOT [Suspect]
     Active Substance: OCTREOTIDE ACETATE
     Indication: NEUROENDOCRINE TUMOUR
     Dosage: 30 MG, QMO, ONCE A MONTH/ MONTHLY
     Route: 030
     Dates: start: 201203
  2. SANDOSTATIN LAR DEPOT [Suspect]
     Active Substance: OCTREOTIDE ACETATE
     Dosage: 40 MG, 2 VIALS OF 20 MG
     Route: 030

REACTIONS (13)
  - Anaemia [Unknown]
  - Blood chromogranin A increased [Recovered/Resolved]
  - Abdominal pain [Unknown]
  - Swelling [Unknown]
  - Eating disorder [Unknown]
  - Feeling abnormal [Unknown]
  - Asthenia [Unknown]
  - Abdominal distension [Unknown]
  - Blood pressure decreased [Unknown]
  - Pain [Unknown]
  - Computerised tomogram abnormal [Recovered/Resolved]
  - Hypophagia [Unknown]
  - Underweight [Unknown]
